FAERS Safety Report 10273757 (Version 2)
Quarter: 2014Q4

REPORT INFORMATION
  Report Type: Spontaneous
  Country: IT (occurrence: None)
  Receive Date: 20140630
  Receipt Date: 20141008
  Transmission Date: 20150528
  Serious: Yes (Hospitalization)
  Sender: FDA-Public Use
  Company Number: IT-016121

PATIENT
  Age: 45 Year
  Sex: Male

DRUGS (3)
  1. TESTONON (TESTONON) (NOT SPECIFIED) [Suspect]
     Active Substance: TESTOSTERONE DECANOATE\TESTOSTERONE ISOCAPROATE\TESTOSTERONE PHENYLPROPIONATE\TESTOSTERONE PROPIONATE
     Indication: SUBSTANCE ABUSE
     Route: 030
     Dates: start: 20140510, end: 20140610
  2. NANDROLONE DECANOATE (MANDROLONE DECANOATE) [Suspect]
     Active Substance: NANDROLONE DECANOATE
     Indication: SUBSTANCE ABUSE
     Route: 030
     Dates: start: 20140510, end: 20140610
  3. SOMATROPIN (SOMATROPIN) [Suspect]
     Active Substance: SOMATROPIN
     Indication: SUBSTANCE ABUSE
     Dosage: 4 IU, 4 IU ({100) SUBCUTANEOUS)
     Route: 058
     Dates: start: 20140410, end: 20140610

REACTIONS (2)
  - Drug abuse [None]
  - Ventricular hypertrophy [None]

NARRATIVE: CASE EVENT DATE: 20140610
